FAERS Safety Report 8553439 (Version 2)
Quarter: 2013Q2

REPORT INFORMATION
  Report Type: Report from Study
  Country: MX (occurrence: MX)
  Receive Date: 20120509
  Receipt Date: 20130522
  Transmission Date: 20140414
  Serious: Yes (Death, Hospitalization, Other)
  Sender: FDA-Public Use
  Company Number: PHHY2012MX038840

PATIENT
  Age: 75 Year
  Sex: Female

DRUGS (3)
  1. ACLASTA [Suspect]
     Indication: OSTEOPOROSIS
     Dosage: 5 MG/100 ML, PER YEAR
     Route: 042
     Dates: start: 201105
  2. ENALAPRIL [Concomitant]
     Dosage: 2 DF, UNK
  3. ENALAPRIL [Concomitant]
     Dosage: 4 DF, UNK

REACTIONS (7)
  - Blood pressure inadequately controlled [Fatal]
  - Cerebrovascular accident [Unknown]
  - Blood pressure increased [Unknown]
  - Headache [Unknown]
  - Hip fracture [Recovered/Resolved]
  - Tendon rupture [Recovered/Resolved]
  - Drug ineffective [Unknown]
